FAERS Safety Report 7090232-9 (Version None)
Quarter: 2010Q4

REPORT INFORMATION
  Report Type: 
  Country: None (occurrence: None)
  Receive Date: 20101104
  Receipt Date: 20101104
  Transmission Date: 20110411
  Serious: Yes (Life-Threatening, Hospitalization)
  Sender: FDA-Public Use
  Company Number: None

PATIENT
  Age: 56 Year
  Sex: Male
  Weight: 102 kg

DRUGS (2)
  1. ENALAPRIL MALEATE [Suspect]
     Dosage: 1 TAB BID PO
     Route: 048
     Dates: start: 20031114, end: 20101029
  2. LOSARTAN [Suspect]
     Dosage: 100 MG EVERY DAY PO
     Route: 048
     Dates: start: 20080512, end: 20101029

REACTIONS (7)
  - ANAPHYLACTIC REACTION [None]
  - ANGIOEDEMA [None]
  - BLOOD PRESSURE SYSTOLIC INCREASED [None]
  - HYPOXIA [None]
  - OEDEMA [None]
  - RESPIRATORY FAILURE [None]
  - SHOCK [None]
